FAERS Safety Report 5936548-8 (Version None)
Quarter: 2008Q4

REPORT INFORMATION
  Report Type: 
  Country: None (occurrence: None)
  Receive Date: 20081030
  Receipt Date: 20081020
  Transmission Date: 20090506
  Serious: No
  Sender: FDA-Public Use
  Company Number: US-B.I. PHARMACEUTICALS,INC./RIDGEFIELD-2008-BP-16024BP

PATIENT
  Sex: Male
  Weight: 86 kg

DRUGS (3)
  1. FLOMAX [Suspect]
     Indication: URINARY TRACT DISORDER
     Dosage: .8MG
     Route: 048
     Dates: start: 20080901
  2. ANDROGEL [Suspect]
     Indication: BLOOD TESTOSTERONE DECREASED
     Dosage: 5G
     Dates: start: 20000101
  3. ZYRTEC [Concomitant]

REACTIONS (2)
  - BLOOD TESTOSTERONE INCREASED [None]
  - URINARY TRACT DISORDER [None]
